FAERS Safety Report 18905211 (Version 2)
Quarter: 2021Q2

REPORT INFORMATION
  Report Type: Spontaneous
  Country: JP (occurrence: JP)
  Receive Date: 20210217
  Receipt Date: 20210407
  Transmission Date: 20210717
  Serious: Yes (Other)
  Sender: FDA-Public Use
  Company Number: JP-OTSUKA-2021_004075

PATIENT
  Age: 87 Year
  Sex: Male

DRUGS (2)
  1. BENZALIN [NITRAZEPAM] [Concomitant]
     Active Substance: NITRAZEPAM
     Indication: PRODUCT USED FOR UNKNOWN INDICATION
     Dosage: UNK
     Route: 048
  2. ABILIFY [Suspect]
     Active Substance: ARIPIPRAZOLE
     Indication: SCHIZOPHRENIA
     Dosage: 12 MG, DAILY DOSE
     Route: 048
     Dates: start: 20201221, end: 20210120

REACTIONS (6)
  - Pneumonia [Unknown]
  - Blood creatine phosphokinase increased [Recovered/Resolved]
  - Blood bilirubin increased [Unknown]
  - Liver disorder [Unknown]
  - Hypernatraemia [Unknown]
  - Schizophrenia [Unknown]

NARRATIVE: CASE EVENT DATE: 20210118
